FAERS Safety Report 5052411-1 (Version None)
Quarter: 2006Q3

REPORT INFORMATION
  Report Type: 
  Country: None (occurrence: None)
  Receive Date: 20060717
  Receipt Date: 20060531
  Transmission Date: 20061208
  Serious: Yes (Other)
  Sender: FDA-Public Use
  Company Number: PHEH2006US07169

PATIENT
  Sex: Female
  Weight: 123.81 kg

DRUGS (9)
  1. IMDUR [Concomitant]
     Dosage: 30 MG, QD
  2. ATENOLOL [Concomitant]
  3. LIPITOR                                 /NET/ [Concomitant]
     Dosage: 20 MG, QD
  4. LASIX [Concomitant]
  5. CAPTOPRIL [Concomitant]
  6. LUNESTA [Concomitant]
  7. ZANTAC [Concomitant]
     Dosage: 150 MG, UNK
  8. ATIVAN [Concomitant]
  9. ENABLEX [Suspect]
     Indication: HYPERTONIC BLADDER
     Dosage: 15 MG, QD
     Dates: start: 20060515, end: 20060516

REACTIONS (2)
  - BLOOD PRESSURE INCREASED [None]
  - CONCOMITANT DISEASE AGGRAVATED [None]
